FAERS Safety Report 8353647-4 (Version None)
Quarter: 2012Q2

REPORT INFORMATION
  Report Type: 
  Country: None (occurrence: None)
  Receive Date: 20120511
  Receipt Date: 20120502
  Transmission Date: 20120825
  Serious: Yes (Disabling)
  Sender: FDA-Public Use
  Company Number: JP-ALLERGAN-1206660US

PATIENT
  Age: 70 Year
  Sex: Male

DRUGS (5)
  1. COSOPT [Concomitant]
     Dosage: UNK
     Dates: start: 20120220, end: 20120420
  2. AMLODIPINE BESYLATE [Concomitant]
     Dosage: UNK
  3. LUMIGAN [Suspect]
     Indication: GLAUCOMA
     Dosage: 1 GTT, QD
     Route: 047
     Dates: start: 20120416, end: 20120420
  4. SANCOBA [Concomitant]
     Dosage: UNK
     Dates: start: 20120120
  5. XYZAL [Concomitant]
     Dosage: UNK

REACTIONS (3)
  - PALPITATIONS [None]
  - EYE IRRITATION [None]
  - EYELID OEDEMA [None]
